FAERS Safety Report 7812919-X (Version None)
Quarter: 2011Q4

REPORT INFORMATION
  Report Type: 
  Country: None (occurrence: None)
  Receive Date: 20111013
  Receipt Date: 20111004
  Transmission Date: 20120403
  Serious: No
  Sender: FDA-Public Use
  Company Number: US-US-EMD SERONO, INC.-7069398

PATIENT
  Sex: Female
  Weight: 111 kg

DRUGS (12)
  1. REBIF [Suspect]
     Indication: MULTIPLE SCLEROSIS
     Route: 058
     Dates: start: 20050601, end: 20080301
  2. ZYRTEC [Concomitant]
  3. DIOVAN [Concomitant]
     Indication: HYPERTENSION
     Dates: start: 20030801
  4. SINGULAIR [Concomitant]
     Indication: ASTHMA
     Dates: start: 20070801
  5. ADVAIR DISKUS 100/50 [Concomitant]
     Indication: ASTHMA
  6. DYNACARE [Concomitant]
     Indication: HYPERTENSION
     Dates: start: 20050101
  7. REBIF [Suspect]
     Route: 058
     Dates: start: 20091001
  8. ZANAFLEX [Concomitant]
     Indication: MUSCLE SPASMS
  9. SYNTHROID [Concomitant]
     Indication: HYPOTHYROIDISM
  10. PROVIGIL [Concomitant]
     Indication: FATIGUE
     Dates: start: 20010724
  11. KLONOPIN [Concomitant]
     Indication: MUSCLE SPASMS
  12. PROTONIX [Concomitant]
     Dates: start: 20030801

REACTIONS (6)
  - WEIGHT DECREASED [None]
  - PERIPHERAL COLDNESS [None]
  - CHILLS [None]
  - PARAESTHESIA [None]
  - PYREXIA [None]
  - HEPATIC ENZYME INCREASED [None]
